FAERS Safety Report 5594994-9 (Version None)
Quarter: 2008Q1

REPORT INFORMATION
  Report Type: 
  Country: None (occurrence: None)
  Receive Date: 20080117
  Receipt Date: 20080107
  Transmission Date: 20080703
  Serious: No
  Sender: FDA-Public Use
  Company Number: US-BAXTER-2008BH000164

PATIENT
  Sex: Female

DRUGS (6)
  1. HEPARIN SODIUM [Suspect]
     Indication: ATRIAL FIBRILLATION
     Route: 040
     Dates: start: 20080103, end: 20080103
  2. HEPARIN SODIUM [Suspect]
     Indication: ATRIAL FLUTTER
     Route: 040
     Dates: start: 20080103, end: 20080103
  3. HEPARIN SODIUM [Suspect]
     Route: 040
     Dates: start: 20080105, end: 20080105
  4. HEPARIN SODIUM [Suspect]
     Route: 040
     Dates: start: 20080105, end: 20080105
  5. HEPARIN SODIUM [Suspect]
     Route: 040
     Dates: start: 20080105, end: 20080105
  6. HEPARIN SODIUM [Suspect]
     Route: 040
     Dates: start: 20080105, end: 20080105

REACTIONS (5)
  - ABDOMINAL PAIN [None]
  - ABDOMINAL PAIN UPPER [None]
  - NAUSEA [None]
  - STOMACH DISCOMFORT [None]
  - VOMITING [None]
